FAERS Safety Report 22105675 (Version 1)
Quarter: 2023Q1

REPORT INFORMATION
  Report Type: Spontaneous
  Country: GB (occurrence: GB)
  Receive Date: 20230317
  Receipt Date: 20230317
  Transmission Date: 20230417
  Serious: Yes (Hospitalization)
  Sender: FDA-Public Use
  Company Number: GB-002147023-NVSC2023GB056851

PATIENT
  Age: 76 Year
  Sex: Male

DRUGS (4)
  1. TAFINLAR [Suspect]
     Active Substance: DABRAFENIB MESYLATE
     Indication: Non-small cell lung cancer metastatic
     Dosage: UNK
     Route: 065
     Dates: start: 20230224, end: 20230228
  2. TAFINLAR [Suspect]
     Active Substance: DABRAFENIB MESYLATE
     Dosage: UNK
     Route: 065
     Dates: start: 20230301
  3. MEKINIST [Suspect]
     Active Substance: TRAMETINIB DIMETHYL SULFOXIDE
     Indication: Non-small cell lung cancer metastatic
     Dosage: UNK
     Route: 065
     Dates: start: 20230224, end: 20230228
  4. MEKINIST [Suspect]
     Active Substance: TRAMETINIB DIMETHYL SULFOXIDE
     Dosage: UNK
     Route: 065
     Dates: start: 20230301

REACTIONS (9)
  - Confusional state [Recovered/Resolved]
  - Urinary retention [Unknown]
  - Syncope [Recovering/Resolving]
  - C-reactive protein increased [Unknown]
  - Body temperature increased [Unknown]
  - Constipation [Unknown]
  - Chromaturia [Unknown]
  - Speech disorder [Recovering/Resolving]
  - Urinary tract infection [Unknown]
